FAERS Safety Report 10871272 (Version 1)
Quarter: 2015Q1

REPORT INFORMATION
  Report Type: Spontaneous
  Country: DE (occurrence: None)
  Receive Date: 20150223
  Receipt Date: 20150223
  Transmission Date: 20150721
  Serious: Yes (Death, Other)
  Sender: FDA-Public Use
  Company Number: 2015-PEL-000529

PATIENT
  Age: 53 Year

DRUGS (6)
  1. MIDAZOLAM [Concomitant]
     Active Substance: MIDAZOLAM\MIDAZOLAM HYDROCHLORIDE
  2. FENTANYL. [Concomitant]
     Active Substance: FENTANYL
  3. SUFENTANIL [Concomitant]
     Active Substance: SUFENTANIL
  4. ISOFLURAN PIRAMAL [Suspect]
     Active Substance: ISOFLURANE
     Indication: ANAESTHESIA
     Route: 055
  5. ETOMIDATE. [Concomitant]
     Active Substance: ETOMIDATE
  6. ADRENALINE (EPINEPHRINE) [Concomitant]
     Active Substance: EPINEPHRINE

REACTIONS (8)
  - Muscle rigidity [None]
  - Respiratory acidosis [None]
  - Hyperkalaemia [None]
  - Continuous haemodiafiltration [None]
  - Erythema [None]
  - Hypercapnia [None]
  - Rhabdomyolysis [None]
  - Hyperthermia malignant [None]
